FAERS Safety Report 21601517 (Version 1)
Quarter: 2022Q4

REPORT INFORMATION
  Report Type: Other
  Country: None (occurrence: US)
  Receive Date: 20221116
  Receipt Date: 20221116
  Transmission Date: 20230113
  Serious: Yes (Hospitalization)
  Sender: FDA-Public Use
  Company Number: US-OrBion Pharmaceuticals Private Limited-2134943

PATIENT
  Age: 17 Year
  Sex: Female
  Weight: 61.4 kg

DRUGS (1)
  1. AMLODIPINE BESYLATE [Suspect]
     Active Substance: AMLODIPINE BESYLATE
     Route: 065

REACTIONS (14)
  - Hypotension [Recovered/Resolved]
  - Lactic acidosis [Recovered/Resolved]
  - Acute kidney injury [Recovered/Resolved]
  - Blood pH decreased [Recovered/Resolved]
  - Carbon dioxide increased [Recovered/Resolved]
  - Blood bicarbonate decreased [Recovered/Resolved]
  - Encephalopathy [Recovered/Resolved]
  - Hypoxia [Recovered/Resolved]
  - Cardiac arrest [Recovered/Resolved]
  - Brain injury [Recovered/Resolved]
  - Mean arterial pressure decreased [Recovered/Resolved]
  - Overdose [Recovered/Resolved]
  - Drug level above therapeutic [Recovered/Resolved]
  - Suicide attempt [Recovered/Resolved]
